FAERS Safety Report 9787978 (Version 2)
Quarter: 2013Q4

REPORT INFORMATION
  Report Type: Report from Study
  Country: US (occurrence: US)
  Receive Date: 20131230
  Receipt Date: 20131230
  Transmission Date: 20140711
  Serious: Yes (Death)
  Sender: FDA-Public Use
  Company Number: US-ACTELION-A-US2013-86488

PATIENT
  Age: 85 Year
  Sex: Female

DRUGS (3)
  1. TRACLEER [Suspect]
     Indication: PULMONARY ARTERIAL HYPERTENSION
     Dosage: UNK
     Route: 048
  2. SILDENAFIL [Concomitant]
  3. COUMADIN [Concomitant]

REACTIONS (7)
  - Death [Fatal]
  - Dyspnoea [Unknown]
  - Chest pain [Unknown]
  - Decreased appetite [Unknown]
  - Back pain [Unknown]
  - Gait disturbance [Unknown]
  - Disturbance in attention [Unknown]
